FAERS Safety Report 5732043-X (Version None)
Quarter: 2008Q2

REPORT INFORMATION
  Report Type: 
  Country: None (occurrence: None)
  Receive Date: 20080506
  Receipt Date: 20080426
  Transmission Date: 20081010
  Serious: Yes (Death, Hospitalization, Other)
  Sender: FDA-Public Use
  Company Number: VE-JNJFOC-200804 01829

PATIENT
  Age: 56 Year
  Sex: Male
  Weight: 91 kg

DRUGS (3)
  1. DECITABINE (DECITABINE) LYOPHILIZED POWDER [Suspect]
     Indication: MYELODYSPLASTIC SYNDROME
     Dosage: 15 MG/M2, INTRAVENOUS
     Route: 042
     Dates: start: 20080128, end: 20080201
  2. AMIKACIN [Concomitant]
  3. UNASYN (UNACID) [Concomitant]

REACTIONS (11)
  - FEBRILE NEUTROPENIA [None]
  - FUNGAL SEPSIS [None]
  - GENERAL PHYSICAL HEALTH DETERIORATION [None]
  - MUCORMYCOSIS [None]
  - PANCYTOPENIA [None]
  - RECTAL ABSCESS [None]
  - SKIN LESION [None]
  - SKIN NECROSIS [None]
  - SKIN ULCER [None]
  - VESSEL PUNCTURE SITE REACTION [None]
  - ZYGOMYCOSIS [None]
